FAERS Safety Report 16324559 (Version 1)
Quarter: 2019Q2

REPORT INFORMATION
  Report Type: Spontaneous
  Country: US (occurrence: US)
  Receive Date: 20190411
  Receipt Date: 20190411
  Transmission Date: 20190711
  Serious: No
  Sender: FDA-Public Use
  Company Number: None

PATIENT
  Age: 43 Year
  Sex: Female
  Weight: 70.31 kg

DRUGS (1)
  1. LEXAPRO [Suspect]
     Active Substance: ESCITALOPRAM OXALATE
     Route: 048
     Dates: start: 20190321, end: 20190321

REACTIONS (4)
  - Therapy cessation [None]
  - Vulvovaginal hypoaesthesia [None]
  - Libido decreased [None]
  - Sexual dysfunction [None]

NARRATIVE: CASE EVENT DATE: 20190322
